FAERS Safety Report 12165620 (Version 1)
Quarter: 2016Q1

REPORT INFORMATION
  Report Type: Spontaneous
  Country: CA (occurrence: CA)
  Receive Date: 20160309
  Receipt Date: 20160309
  Transmission Date: 20160526
  Serious: Yes (Other)
  Sender: FDA-Public Use
  Company Number: CA-TEVA-641436USA

PATIENT
  Sex: Female

DRUGS (6)
  1. NAPROXEN. [Concomitant]
     Active Substance: NAPROXEN
  2. LOTRIDERM [Concomitant]
     Active Substance: BETAMETHASONE DIPROPIONATE\CLOTRIMAZOLE
  3. PREMARIN VAGINAL [Concomitant]
     Active Substance: ESTROGENS, CONJUGATED
     Route: 067
  4. TEVA-PANTOPRAZOLE MAGNESIUM [Suspect]
     Active Substance: PANTOPRAZOLE MAGNESIUM
     Indication: PRODUCT USED FOR UNKNOWN INDICATION
     Dosage: 80 MILLIGRAM DAILY; STRENGTH 40MG
     Route: 048
     Dates: start: 20160225
  5. METFORMIN [Concomitant]
     Active Substance: METFORMIN HYDROCHLORIDE
  6. REPAGLINIDE. [Concomitant]
     Active Substance: REPAGLINIDE

REACTIONS (7)
  - Product substitution issue [Unknown]
  - Skin reaction [Unknown]
  - Haematemesis [Unknown]
  - Dizziness [Unknown]
  - Vomiting [Unknown]
  - Dyspepsia [Unknown]
  - Cough [Unknown]

NARRATIVE: CASE EVENT DATE: 20160225
